FAERS Safety Report 8221160-0 (Version None)
Quarter: 2012Q1

REPORT INFORMATION
  Report Type: 
  Country: None (occurrence: None)
  Receive Date: 20120320
  Receipt Date: 20120308
  Transmission Date: 20120608
  Serious: No
  Sender: FDA-Public Use
  Company Number: AU-JNJFOC-20120305544

PATIENT
  Sex: Female

DRUGS (6)
  1. DURAGESIC-100 [Suspect]
     Indication: PAIN
     Route: 062
  2. DURAGESIC-100 [Suspect]
     Route: 062
  3. LYRICA [Concomitant]
     Route: 065
  4. IBUPROFEN [Concomitant]
     Route: 065
  5. RABEPRAZOLE SODIUM [Concomitant]
     Route: 065
  6. ACETAMINOPHEN AND CODEINE PHOSPHATE [Concomitant]
     Route: 065

REACTIONS (3)
  - DRUG ADMINISTRATION ERROR [None]
  - MALAISE [None]
  - DRUG PRESCRIBING ERROR [None]
